FAERS Safety Report 5483638-2 (Version None)
Quarter: 2007Q4

REPORT INFORMATION
  Report Type: 
  Country: None (occurrence: None)
  Receive Date: 20071010
  Receipt Date: 20071003
  Transmission Date: 20080405
  Serious: Yes (Other)
  Sender: FDA-Public Use
  Company Number: 2007332350

PATIENT
  Sex: Female

DRUGS (1)
  1. BENADRYL [Suspect]

REACTIONS (2)
  - ILL-DEFINED DISORDER [None]
  - UNEVALUABLE EVENT [None]
